FAERS Safety Report 8490543-6 (Version None)
Quarter: 2012Q3

REPORT INFORMATION
  Report Type: 
  Country: None (occurrence: None)
  Receive Date: 20120705
  Receipt Date: 20120625
  Transmission Date: 20120928
  Serious: Yes (Other)
  Sender: FDA-Public Use
  Company Number: US-ABBOTT-12P-163-0942746-00

PATIENT
  Sex: Female

DRUGS (5)
  1. SYNTHROID [Concomitant]
     Indication: HYPOTHYROIDISM
  2. VERAPAMIL [Concomitant]
     Indication: MIGRAINE
  3. HUMIRA [Suspect]
     Dates: start: 20120401
  4. HUMIRA [Suspect]
     Indication: PSORIASIS
  5. HUMIRA [Suspect]
     Indication: PSORIATIC ARTHROPATHY
     Dates: start: 20111001, end: 20111201

REACTIONS (6)
  - THROMBOSIS [None]
  - HERPES ZOSTER [None]
  - PSORIASIS [None]
  - ARTHRALGIA [None]
  - BONE DISORDER [None]
  - PSORIATIC ARTHROPATHY [None]
